FAERS Safety Report 14347088 (Version 1)
Quarter: 2018Q1

REPORT INFORMATION
  Report Type: Spontaneous
  Country: US (occurrence: US)
  Receive Date: 20180102
  Receipt Date: 20180102
  Transmission Date: 20180509
  Serious: No
  Sender: FDA-Public Use
  Company Number: None

PATIENT
  Age: 53 Year
  Sex: Female
  Weight: 77.56 kg

DRUGS (1)
  1. GLATIRAMER ACETATE, 20MG/ML MG/ML [Suspect]
     Active Substance: GLATIRAMER ACETATE
     Indication: MULTIPLE SCLEROSIS
     Route: 058
     Dates: start: 20171127, end: 20171212

REACTIONS (2)
  - Pain [None]
  - Contusion [None]

NARRATIVE: CASE EVENT DATE: 20171213
